FAERS Safety Report 7807758-X (Version None)
Quarter: 2011Q4

REPORT INFORMATION
  Report Type: 
  Country: None (occurrence: None)
  Receive Date: 20111011
  Receipt Date: 20111003
  Transmission Date: 20120403
  Serious: Yes (Other)
  Sender: FDA-Public Use
  Company Number: CHPA2011US13717

PATIENT
  Age: 69 Year
  Sex: Female

DRUGS (1)
  1. PERDIEM FIBER [Suspect]
     Indication: CONSTIPATION
     Dosage: 2 TSP, UNK
     Route: 048

REACTIONS (1)
  - DRUG DEPENDENCE [None]
